FAERS Safety Report 16379742 (Version 1)
Quarter: 2019Q2

REPORT INFORMATION
  Report Type: Spontaneous
  Country: US (occurrence: US)
  Receive Date: 20190531
  Receipt Date: 20190531
  Transmission Date: 20190711
  Serious: Yes (Other)
  Sender: FDA-Public Use
  Company Number: US-BAYER-2019-103565

PATIENT
  Age: 37 Year
  Sex: Male

DRUGS (1)
  1. LAROTRECTINIB [Suspect]
     Active Substance: LAROTRECTINIB
     Indication: BENIGN SALIVARY GLAND NEOPLASM
     Dosage: 100 MG, BID
     Route: 048

REACTIONS (2)
  - Fatigue [None]
  - Alanine aminotransferase increased [None]
